FAERS Safety Report 7714567 (Version 3)
Quarter: 2017Q1

REPORT INFORMATION
  Report Type: Report from Study
  Country: US (occurrence: US)
  Receive Date: 20101216
  Receipt Date: 20170103
  Transmission Date: 20170429
  Serious: Yes (Hospitalization)
  Sender: FDA-Public Use
  Company Number: PHHO2010US18545

PATIENT
  Age: 2 Year
  Sex: Female
  Weight: 13.4 kg

DRUGS (5)
  1. LORAZEPAM. [Suspect]
     Active Substance: LORAZEPAM
  2. AFINITOR [Suspect]
     Active Substance: EVEROLIMUS
     Dosage: UNK
     Route: 048
  3. IMMUNOGLOBULIN G HUMAN [Concomitant]
     Active Substance: HUMAN IMMUNOGLOBULIN G
     Indication: BLOOD IMMUNOGLOBULIN G DECREASED
     Dosage: UNK
     Dates: start: 20101119
  4. AFINITOR [Suspect]
     Active Substance: EVEROLIMUS
     Indication: EPILEPSY
     Dosage: 2.5 MG, QD
     Route: 048
     Dates: start: 20101125, end: 20101129
  5. AFINITOR [Suspect]
     Active Substance: EVEROLIMUS
     Dosage: 2.5 MG, BID
     Route: 048
     Dates: start: 20101201, end: 20101201

REACTIONS (4)
  - Otitis media [Recovered/Resolved]
  - Seizure [Recovered/Resolved]
  - Respiratory disorder [Recovering/Resolving]
  - Pyrexia [Recovered/Resolved]

NARRATIVE: CASE EVENT DATE: 20101129
